FAERS Safety Report 24731765 (Version 1)
Quarter: 2024Q4

REPORT INFORMATION
  Report Type: Spontaneous
  Country: US (occurrence: None)
  Receive Date: 20241212
  Receipt Date: 20241212
  Transmission Date: 20250115
  Serious: Yes (Life-Threatening, Disabling, Other)
  Sender: Public
  Company Number: None

PATIENT
  Age: 16 Year
  Sex: Female
  Weight: 72 kg

DRUGS (2)
  1. DEPO-PROVERA [Suspect]
     Active Substance: MEDROXYPROGESTERONE ACETATE
     Indication: Contraception
  2. COLLAGEN [Concomitant]
     Active Substance: COLLAGEN

REACTIONS (2)
  - Ill-defined disorder [None]
  - Unevaluable event [None]

NARRATIVE: CASE EVENT DATE: 19930915
